FAERS Safety Report 24881117 (Version 1)
Quarter: 2025Q1

REPORT INFORMATION
  Report Type: Spontaneous
  Country: US (occurrence: None)
  Receive Date: 20250124
  Receipt Date: 20250124
  Transmission Date: 20250409
  Serious: No
  Sender: SOLSTICE NEUROSCIENCES, LLC
  Company Number: US-Solstice Neurosciences, LLC-MDD202411-004259

PATIENT
  Age: 63 Year
  Sex: Female

DRUGS (1)
  1. MYOBLOC [Suspect]
     Active Substance: RIMABOTULINUMTOXINB
     Indication: Product used for unknown indication
     Route: 030

REACTIONS (2)
  - Dyskinesia [Unknown]
  - Rash [Unknown]

NARRATIVE: CASE EVENT DATE: 20241106
